FAERS Safety Report 8000081-2 (Version None)
Quarter: 2011Q4

REPORT INFORMATION
  Report Type: 
  Country: None (occurrence: None)
  Receive Date: 20111222
  Receipt Date: 20111209
  Transmission Date: 20120403
  Serious: Yes (Hospitalization)
  Sender: FDA-Public Use
  Company Number: MY-ELI_LILLY_AND_COMPANY-MY201112002863

PATIENT
  Age: 84 Year
  Sex: Female

DRUGS (1)
  1. FORTEO [Suspect]
     Indication: OSTEOPOROSIS
     Dosage: 20 UG, UNK
     Dates: start: 20111105, end: 20111101

REACTIONS (5)
  - OEDEMA PERIPHERAL [None]
  - HOSPITALISATION [None]
  - HYPERTENSION [None]
  - ABDOMINAL DISTENSION [None]
  - VOMITING [None]
